FAERS Safety Report 7823667-4 (Version None)
Quarter: 2011Q4

REPORT INFORMATION
  Report Type: 
  Country: None (occurrence: None)
  Receive Date: 20111019
  Receipt Date: 20111019
  Transmission Date: 20120403
  Serious: Yes (Life-Threatening)
  Sender: FDA-Public Use
  Company Number: None

PATIENT
  Age: 70 Year
  Sex: Female

DRUGS (1)
  1. HURRICAINE SPRAY [Suspect]
     Indication: ANAESTHESIA
     Dosage: ONE SPRAY TO THROAT
     Route: 007
     Dates: start: 20110505, end: 20110505

REACTIONS (3)
  - PROCEDURAL COMPLICATION [None]
  - CYANOSIS [None]
  - METHAEMOGLOBINAEMIA [None]
